FAERS Safety Report 19068081 (Version 1)
Quarter: 2021Q1

REPORT INFORMATION
  Report Type: Spontaneous
  Country: CN (occurrence: CN)
  Receive Date: 20210329
  Receipt Date: 20210329
  Transmission Date: 20210420
  Serious: Yes (Hospitalization)
  Sender: FDA-Public Use
  Company Number: CN-PFIZER INC-2021302713

PATIENT
  Age: 31 Year
  Sex: Female
  Weight: 45.5 kg

DRUGS (2)
  1. METHOTREXATE SODIUM. [Suspect]
     Active Substance: METHOTREXATE SODIUM
     Indication: ECTOPIC PREGNANCY
     Dosage: 100 MG, ONCE EVERY 2 DAYS, 5 TIMES IN TOTAL
     Route: 030
     Dates: start: 20210124, end: 20210201
  2. MIFEPRISTONE [Concomitant]
     Active Substance: MIFEPRISTONE
     Indication: ECTOPIC PREGNANCY
     Dosage: 150 MG, 100 MG ONCE EVERY 2 DAYS, 5 TIMES
     Route: 048
     Dates: start: 20210124, end: 20210201

REACTIONS (3)
  - Off label use [Unknown]
  - Aphthous ulcer [Recovering/Resolving]
  - Myelosuppression [Recovering/Resolving]
